FAERS Safety Report 5787530-5 (Version None)
Quarter: 2008Q2

REPORT INFORMATION
  Report Type: 
  Country: None (occurrence: None)
  Receive Date: 20080625
  Receipt Date: 20080617
  Transmission Date: 20081010
  Serious: Yes (Hospitalization)
  Sender: FDA-Public Use
  Company Number: CA-ROCHE-567082

PATIENT
  Sex: Male

DRUGS (9)
  1. GLIBENCLAMIDE [Suspect]
     Indication: DRUG USE FOR UNKNOWN INDICATION
     Route: 065
  2. DILAUDID [Suspect]
     Indication: DRUG USE FOR UNKNOWN INDICATION
     Route: 065
  3. DILAUDID [Suspect]
     Dosage: REPORTED AS DILAUDID CONTIN.
     Route: 065
  4. METFORMIN HCL [Concomitant]
  5. DIAZEPAM [Concomitant]
  6. LIPITOR [Concomitant]
  7. MONOCOR [Concomitant]
  8. HYSRON [Concomitant]
  9. FLURAZEPAM [Concomitant]

REACTIONS (4)
  - CONFUSIONAL STATE [None]
  - DEHYDRATION [None]
  - DRUG TOXICITY [None]
  - HYPOTENSION [None]
